FAERS Safety Report 24877233 (Version 4)
Quarter: 2025Q2

REPORT INFORMATION
  Report Type: Report from Study
  Country: US (occurrence: US)
  Receive Date: 20250123
  Receipt Date: 20250507
  Transmission Date: 20250716
  Serious: No
  Sender: SUNOVION
  Company Number: US-SUMITOMO PHARMA SWITZERLAND GMBH-2025SPA000396

PATIENT

DRUGS (11)
  1. ORGOVYX [Suspect]
     Active Substance: RELUGOLIX
     Indication: Prostate cancer
     Dosage: 360 MG, SINGLE
     Route: 048
  2. ORGOVYX [Suspect]
     Active Substance: RELUGOLIX
     Dosage: 120 MG, QD
     Route: 048
     Dates: start: 20230910
  3. GEMTESA [Suspect]
     Active Substance: VIBEGRON
     Indication: Product used for unknown indication
     Route: 048
  4. NUBEQA [Suspect]
     Active Substance: DAROLUTAMIDE
     Indication: Prostate cancer
     Dosage: 600 MG, BID
     Route: 065
     Dates: start: 20250107
  5. XTANDI [Concomitant]
     Active Substance: ENZALUTAMIDE
     Route: 065
  6. CANNABIDIOL [Concomitant]
     Active Substance: CANNABIDIOL
     Route: 065
  7. CASODEX [Concomitant]
     Active Substance: BICALUTAMIDE
     Route: 048
  8. LISINOPRIL [Concomitant]
     Active Substance: LISINOPRIL
     Route: 048
  9. MYRBETRIQ [Concomitant]
     Active Substance: MIRABEGRON
     Route: 048
  10. MEGESTROL ACETATE [Concomitant]
     Active Substance: MEGESTROL ACETATE
     Route: 048
  11. XARELTO [Concomitant]
     Active Substance: RIVAROXABAN
     Route: 048

REACTIONS (3)
  - Fatigue [Unknown]
  - Back pain [Unknown]
  - Arthralgia [Unknown]
